FAERS Safety Report 6137040-0 (Version None)
Quarter: 2009Q1

REPORT INFORMATION
  Report Type: 
  Country: None (occurrence: None)
  Receive Date: 20090326
  Receipt Date: 20090326
  Transmission Date: 20090719
  Serious: Yes (Hospitalization)
  Sender: FDA-Public Use
  Company Number: None

PATIENT
  Age: 45 Year
  Sex: Female
  Weight: 70.7611 kg

DRUGS (1)
  1. PREDNISONE TAB [Suspect]
     Indication: PAIN
     Dosage: 3 IN MORNING 3 AT NIGHT PO
     Route: 048
     Dates: start: 20071008, end: 20080823

REACTIONS (9)
  - CONDITION AGGRAVATED [None]
  - DIABETES MELLITUS [None]
  - EYE DISORDER [None]
  - EYE PAIN [None]
  - LIVER DISORDER [None]
  - MUSCULAR WEAKNESS [None]
  - PAIN [None]
  - PAIN IN EXTREMITY [None]
  - RENAL DISORDER [None]
